FAERS Safety Report 10631484 (Version 2)
Quarter: 2014Q4

REPORT INFORMATION
  Report Type: Spontaneous
  Country: US (occurrence: US)
  Receive Date: 20141205
  Receipt Date: 20141205
  Transmission Date: 20150529
  Serious: No
  Sender: FDA-Public Use
  Company Number: US-BRISTOL-MYERS SQUIBB COMPANY-21484555

PATIENT
  Age: 73 Year
  Sex: Female
  Weight: 72.56 kg

DRUGS (2)
  1. METFORMIN HCL [Concomitant]
     Active Substance: METFORMIN HYDROCHLORIDE
  2. BYETTA [Suspect]
     Active Substance: EXENATIDE
     Indication: TYPE 2 DIABETES MELLITUS
     Dosage: NO OF DOSES:5
     Route: 058
     Dates: end: 201409

REACTIONS (6)
  - Malaise [Unknown]
  - Urinary tract infection [Unknown]
  - Vomiting [Unknown]
  - Dysuria [Unknown]
  - Chills [Unknown]
  - Pyrexia [Unknown]
